FAERS Safety Report 15690274 (Version 1)
Quarter: 2018Q4

REPORT INFORMATION
  Report Type: Spontaneous
  Country: US (occurrence: US)
  Receive Date: 20181205
  Receipt Date: 20181205
  Transmission Date: 20190205
  Serious: Yes (Hospitalization)
  Sender: FDA-Public Use
  Company Number: US-MYLANLABS-2018M1088118

PATIENT
  Age: 55 Year
  Sex: Male

DRUGS (2)
  1. GANCICLOVIR. [Suspect]
     Active Substance: GANCICLOVIR
     Indication: CYTOMEGALOVIRUS CHORIORETINITIS
     Dosage: INDUCTION; 2.5 MG/KG/DOSE EVERY 12HOURS
     Route: 041
  2. GANCICLOVIR. [Suspect]
     Active Substance: GANCICLOVIR
     Dosage: MAINTENANCE; 2.5MG/KG/DOSE EVERY 24HOURS
     Route: 041

REACTIONS (2)
  - Infusion site vesicles [Recovered/Resolved]
  - Infusion site extravasation [Recovered/Resolved]
